FAERS Safety Report 10040836 (Version 1)
Quarter: 2014Q1

REPORT INFORMATION
  Report Type: Spontaneous
  Country: US (occurrence: US)
  Receive Date: 20140327
  Receipt Date: 20140327
  Transmission Date: 20141002
  Serious: No
  Sender: FDA-Public Use
  Company Number: US-PFIZER INC-2014083817

PATIENT
  Sex: Male

DRUGS (2)
  1. LYRICA [Suspect]
     Indication: RESTLESS LEGS SYNDROME
     Dosage: 50 MG, 2X/DAY
  2. LYRICA [Suspect]
     Dosage: 25 MG, 2X/DAY

REACTIONS (2)
  - Fatigue [Recovering/Resolving]
  - Drug ineffective [Unknown]
